FAERS Safety Report 7909269-X (Version None)
Quarter: 2011Q4

REPORT INFORMATION
  Report Type: 
  Country: None (occurrence: None)
  Receive Date: 20111111
  Receipt Date: 20111104
  Transmission Date: 20120403
  Serious: Yes (Hospitalization, Other)
  Sender: FDA-Public Use
  Company Number: JP-CEPHALON-2011004834

PATIENT
  Sex: Male
  Weight: 61 kg

DRUGS (8)
  1. BENDAMUSTINE HCL [Suspect]
     Route: 042
     Dates: start: 20110425
  2. LEVOFLOXACIN [Concomitant]
     Dates: start: 20110301, end: 20110307
  3. FLUCONAZOLE [Concomitant]
     Dates: start: 20110201, end: 20110614
  4. ACYCLOVIR [Concomitant]
     Dates: start: 20110201, end: 20110529
  5. SULFAMETHOXAZOLE AND TRIMETHOPRIM [Concomitant]
     Dates: start: 20110209, end: 20110602
  6. BENPROPERINE PHOSPHATE [Concomitant]
     Dates: start: 20110301, end: 20110307
  7. APREPITANT [Concomitant]
     Dates: start: 20110425, end: 20110428
  8. BENDAMUSTINE HCL [Suspect]
     Indication: MANTLE CELL LYMPHOMA
     Route: 042
     Dates: start: 20110201, end: 20110301

REACTIONS (8)
  - MALAISE [None]
  - DECREASED APPETITE [None]
  - SPUTUM INCREASED [None]
  - ANAEMIA [None]
  - LYMPHOCYTE COUNT DECREASED [None]
  - WHITE BLOOD CELL COUNT DECREASED [None]
  - NAUSEA [None]
  - C-REACTIVE PROTEIN INCREASED [None]
